FAERS Safety Report 5376316-1 (Version None)
Quarter: 2007Q2

REPORT INFORMATION
  Report Type: 
  Country: None (occurrence: None)
  Receive Date: 20070627
  Receipt Date: 20070627
  Transmission Date: 20071010
  Serious: Yes (Other)
  Sender: FDA-Public Use
  Company Number: None

PATIENT
  Age: 31 Year
  Sex: Female
  Weight: 65.7 kg

DRUGS (4)
  1. ISOVUE-300 [Suspect]
     Indication: COMPUTERISED TOMOGRAM
     Dosage: 130 MG IV @ 2 ML/SEC
     Route: 042
     Dates: start: 20070426
  2. ORAL CONTRAST [Suspect]
  3. MOV [Concomitant]
  4. CALCIUM CARBONATE/VITAMIN D [Concomitant]

REACTIONS (3)
  - EYELID DISORDER [None]
  - PRURITUS [None]
  - URTICARIA [None]
